FAERS Safety Report 8152956-1 (Version None)
Quarter: 2012Q1

REPORT INFORMATION
  Report Type: 
  Country: None (occurrence: None)
  Receive Date: 20120103
  Receipt Date: 20111101
  Transmission Date: 20120608
  Serious: No
  Sender: FDA-Public Use
  Company Number: AE-2011-002928

PATIENT
  Age: 43 Year
  Sex: Female
  Weight: 90.7194 kg

DRUGS (6)
  1. CITALOPRAM HYDROBROMIDE [Concomitant]
  2. AMBIEN [Concomitant]
  3. LAMICTAL [Concomitant]
  4. PEGASYS [Concomitant]
  5. INCIVEK [Suspect]
     Dosage: 2250 MG (750 MG,3 IN 1 D),ORAL
     Route: 048
     Dates: start: 20111018
  6. COPEGUS [Concomitant]

REACTIONS (5)
  - ANORECTAL DISORDER [None]
  - DRY SKIN [None]
  - NAUSEA [None]
  - INFLUENZA LIKE ILLNESS [None]
  - VOMITING [None]
